FAERS Safety Report 6919671-0 (Version None)
Quarter: 2010Q3

REPORT INFORMATION
  Report Type: 
  Country: None (occurrence: None)
  Receive Date: 20100811
  Receipt Date: 20100802
  Transmission Date: 20110219
  Serious: Yes (Other)
  Sender: FDA-Public Use
  Company Number: US-B.I. PHARMACEUTICALS,INC./RIDGEFIELD-2010-BP-06873BP

PATIENT
  Age: 67 Year
  Sex: Male
  Weight: 68.9 kg

DRUGS (5)
  1. MICARDIS [Suspect]
     Indication: HYPERTENSION
     Dosage: 40 MG
     Route: 048
     Dates: start: 20000601, end: 20100605
  2. NIFEDIAC [Concomitant]
     Indication: HYPERTENSION
  3. ADALAT [Concomitant]
  4. VITAMIN D [Concomitant]
  5. CLARITIN [Concomitant]

REACTIONS (2)
  - NIGHT SWEATS [None]
  - PROSTATE CANCER [None]
